FAERS Safety Report 5421047-2 (Version None)
Quarter: 2007Q3

REPORT INFORMATION
  Report Type: 
  Country: None (occurrence: None)
  Receive Date: 20070821
  Receipt Date: 20070815
  Transmission Date: 20080115
  Serious: Yes (Hospitalization)
  Sender: FDA-Public Use
  Company Number: A0670652A

PATIENT
  Age: 75 Year
  Sex: Female

DRUGS (6)
  1. ADVAIR DISKUS 100/50 [Suspect]
     Indication: CHRONIC OBSTRUCTIVE PULMONARY DISEASE
     Dosage: 1PUFF TWICE PER DAY
     Route: 055
     Dates: start: 20020101, end: 20070814
  2. MS CONTIN [Concomitant]
  3. LASIX [Concomitant]
  4. CHLOROQUINE PHOSPHATE [Concomitant]
  5. VITAMIN [Concomitant]
  6. POTASSIUM CHLORIDE [Concomitant]

REACTIONS (1)
  - BRONCHITIS CHRONIC [None]
